FAERS Safety Report 4610964-9 (Version None)
Quarter: 2005Q1

REPORT INFORMATION
  Report Type: 
  Country: None (occurrence: None)
  Receive Date: 20050315
  Receipt Date: 20050315
  Transmission Date: 20050727
  Serious: Yes (Other)
  Sender: FDA-Public Use
  Company Number: None

PATIENT
  Sex: Female

DRUGS (2)
  1. TRANSDERM SCOP [Suspect]
     Indication: MOTION SICKNESS
     Dosage: 1 PATCH FOR 3 DAYS
     Route: 062
     Dates: start: 20050219, end: 20050221
  2. ESTRADIOL [Concomitant]

REACTIONS (6)
  - ABNORMAL BEHAVIOUR [None]
  - CRYING [None]
  - DRY EYE [None]
  - HYPERSENSITIVITY [None]
  - INSOMNIA [None]
  - OVERDOSE [None]
